FAERS Safety Report 16773566 (Version 2)
Quarter: 2019Q3

REPORT INFORMATION
  Report Type: Report from Study
  Country: BE (occurrence: BE)
  Receive Date: 20190904
  Receipt Date: 20190919
  Transmission Date: 20191005
  Serious: Yes (Other)
  Sender: FDA-Public Use
  Company Number: BE-BAUSCH-BL-2019-025409

PATIENT
  Age: 45 Year
  Sex: Female

DRUGS (2)
  1. KYNTHEUM [Suspect]
     Active Substance: BRODALUMAB
     Indication: PSORIASIS
     Route: 058
     Dates: start: 20181008, end: 2018
  2. KYNTHEUM [Suspect]
     Active Substance: BRODALUMAB
     Dosage: STOPPED UPON START DATE OF EVENT (APRIL OR MAY 2019)
     Route: 058
     Dates: start: 20181228, end: 2019

REACTIONS (1)
  - Breast cancer [Unknown]

NARRATIVE: CASE EVENT DATE: 20190409
